FAERS Safety Report 24811014 (Version 4)
Quarter: 2025Q1

REPORT INFORMATION
  Report Type: Spontaneous
  Country: US (occurrence: US)
  Receive Date: 20250106
  Receipt Date: 20250225
  Transmission Date: 20250408
  Serious: No
  Sender: PFIZER
  Company Number: US-PFIZER INC-202400333418

PATIENT
  Age: 8 Year
  Sex: Female

DRUGS (1)
  1. GENOTROPIN [Suspect]
     Active Substance: SOMATROPIN
     Dosage: 0.5 MG, DAILY

REACTIONS (6)
  - Drug dose omission by device [Unknown]
  - Poor quality device used [Unknown]
  - Device breakage [Unknown]
  - Device material issue [Unknown]
  - Device issue [Unknown]
  - Device leakage [Unknown]
